FAERS Safety Report 17406587 (Version 1)
Quarter: 2020Q1

REPORT INFORMATION
  Report Type: Spontaneous
  Country: US (occurrence: US)
  Receive Date: 20200212
  Receipt Date: 20200212
  Transmission Date: 20200409
  Serious: No
  Sender: FDA-Public Use
  Company Number: US-ALLERGAN-1932419US

PATIENT
  Age: 4 Decade
  Sex: Female

DRUGS (1)
  1. VIIBRYD [Suspect]
     Active Substance: VILAZODONE HYDROCHLORIDE
     Indication: MAJOR DEPRESSION
     Dosage: ACTUAL: 40 MG WITHOUT FOOD FOR FEW WEEKS AND THEN WITH FOOD
     Route: 065

REACTIONS (2)
  - Inappropriate schedule of product administration [Unknown]
  - Headache [Unknown]
